FAERS Safety Report 9411303 (Version 1)
Quarter: 2013Q3

REPORT INFORMATION
  Report Type: Spontaneous
  Country: US (occurrence: US)
  Receive Date: 20130722
  Receipt Date: 20130722
  Transmission Date: 20140515
  Serious: No
  Sender: FDA-Public Use
  Company Number: US-BIOGENIDEC-2013BI065273

PATIENT
  Sex: Female

DRUGS (4)
  1. AVONEX [Suspect]
     Indication: MULTIPLE SCLEROSIS
     Route: 030
     Dates: start: 20110324
  2. LISINOPRIL [Concomitant]
  3. OXYBUTYNIN CHLORIDE [Concomitant]
  4. FAMOTIDINE [Concomitant]

REACTIONS (1)
  - Fall [Unknown]
